FAERS Safety Report 16498236 (Version 4)
Quarter: 2019Q2

REPORT INFORMATION
  Report Type: Report from Study
  Country: IT (occurrence: IT)
  Receive Date: 20190629
  Receipt Date: 20190629
  Transmission Date: 20190711
  Serious: Yes (Other)
  Sender: FDA-Public Use
  Company Number: IT-ACCORD-135656

PATIENT
  Age: 56 Year
  Sex: Male

DRUGS (5)
  1. AKINETON [Concomitant]
     Active Substance: BIPERIDEN HYDROCHLORIDE
     Dosage: 4 MG PROLONGED-RELEASE TABLETS
     Route: 048
     Dates: start: 20190402, end: 20190406
  2. TALOFEN [Concomitant]
     Active Substance: PROMAZINE HYDROCHLORIDE
     Route: 030
  3. SERENASE [Concomitant]
  4. DELORAZEPAM [Concomitant]
     Active Substance: DELORAZEPAM
     Route: 047
  5. TRAZODONE [Suspect]
     Active Substance: TRAZODONE HYDROCHLORIDE
     Indication: DEPRESSION
     Route: 048
     Dates: start: 20190402, end: 20190406

REACTIONS (2)
  - Respiratory failure [Recovering/Resolving]
  - Macroglossia [Recovering/Resolving]

NARRATIVE: CASE EVENT DATE: 20190406
